FAERS Safety Report 8762940 (Version 1)
Quarter: 2012Q4

REPORT INFORMATION
  Report Type: Spontaneous
  Country: US (occurrence: None)
  Receive Date: 20120830
  Receipt Date: 20120830
  Transmission Date: 20130627
  Serious: Yes (Other)
  Sender: FDA-Public Use
  Company Number: None

PATIENT
  Age: 35 Year
  Sex: Male
  Weight: 97.52 kg

DRUGS (1)
  1. CELEXA [Suspect]
     Indication: DEPRESSION
     Route: 048
     Dates: start: 20111217, end: 20111225

REACTIONS (36)
  - Malaise [None]
  - Dizziness [None]
  - Heart rate increased [None]
  - Dyspnoea [None]
  - Loss of consciousness [None]
  - Road traffic accident [None]
  - Memory impairment [None]
  - Agitation [None]
  - Refusal of treatment by patient [None]
  - Imprisonment [None]
  - Feeling abnormal [None]
  - Feeling abnormal [None]
  - Tremor [None]
  - Fatigue [None]
  - Somnolence [None]
  - Asthenia [None]
  - Withdrawal syndrome [None]
  - Heart rate irregular [None]
  - Vomiting [None]
  - Diarrhoea [None]
  - Abdominal pain [None]
  - Feeling hot [None]
  - Decreased appetite [None]
  - Aphagia [None]
  - Confusional state [None]
  - Cold sweat [None]
  - Insomnia [None]
  - Initial insomnia [None]
  - Hallucination, auditory [None]
  - Dry mouth [None]
  - Lip dry [None]
  - Dry throat [None]
  - Swollen tongue [None]
  - Pharyngeal oedema [None]
  - Thirst [None]
  - Headache [None]
